FAERS Safety Report 7783337-8 (Version None)
Quarter: 2011Q3

REPORT INFORMATION
  Report Type: 
  Country: None (occurrence: None)
  Receive Date: 20110926
  Receipt Date: 20110912
  Transmission Date: 20111222
  Serious: Yes (Other)
  Sender: FDA-Public Use
  Company Number: IT-ACCORD-010642

PATIENT

DRUGS (2)
  1. CARBOPLATIN [Suspect]
     Indication: NEUROBLASTOMA
  2. ETOPOSIDE [Suspect]
     Indication: NEUROBLASTOMA

REACTIONS (2)
  - BARRETT'S OESOPHAGUS [None]
  - NEUROBLASTOMA [None]
